FAERS Safety Report 12138454 (Version 4)
Quarter: 2016Q1

REPORT INFORMATION
  Report Type: Report from Study
  Country: US (occurrence: US)
  Receive Date: 20160302
  Receipt Date: 20160330
  Transmission Date: 20160526
  Serious: Yes (Hospitalization)
  Sender: FDA-Public Use
  Company Number: US-JNJFOC-20160226898

PATIENT
  Age: 11 Year
  Sex: Male
  Weight: 36.1 kg

DRUGS (2)
  1. REMICADE [Suspect]
     Active Substance: INFLIXIMAB
     Indication: COLITIS ULCERATIVE
     Route: 042
     Dates: start: 20150505
  2. 6-MP [Concomitant]
     Active Substance: MERCAPTOPURINE
     Route: 065

REACTIONS (1)
  - Inflammatory bowel disease [Recovered/Resolved with Sequelae]

NARRATIVE: CASE EVENT DATE: 20160216
